FAERS Safety Report 17113011 (Version 2)
Quarter: 2019Q4

REPORT INFORMATION
  Report Type: Report from Study
  Country: US (occurrence: US)
  Receive Date: 20191204
  Receipt Date: 20191211
  Transmission Date: 20200122
  Serious: Yes (Hospitalization, Other)
  Sender: FDA-Public Use
  Company Number: US-ACTELION-A-NJ2019-186991

PATIENT
  Age: 83 Year
  Sex: Female
  Weight: 52.61 kg

DRUGS (5)
  1. TYVASO [Suspect]
     Active Substance: TREPROSTINIL
     Indication: PRODUCT USED FOR UNKNOWN INDICATION
     Route: 065
  2. ADEMPAS [Concomitant]
     Active Substance: RIOCIGUAT
  3. ELIQUIS [Concomitant]
     Active Substance: APIXABAN
  4. OPSUMIT [Suspect]
     Active Substance: MACITENTAN
     Indication: PULMONARY HYPERTENSION
     Dosage: 10 MG, QD
     Route: 048
     Dates: start: 20190204
  5. TYVASO [Suspect]
     Active Substance: TREPROSTINIL
     Dosage: 2 BREATHS
     Route: 065

REACTIONS (20)
  - Aspiration joint [Unknown]
  - Gait disturbance [Unknown]
  - Dizziness [Unknown]
  - Unevaluable event [Unknown]
  - Dyspnoea exertional [Unknown]
  - Arthritis [Unknown]
  - Blood pressure fluctuation [Unknown]
  - Nasal congestion [Unknown]
  - Asthenia [Recovered/Resolved]
  - Limb discomfort [Recovered/Resolved]
  - Joint swelling [Unknown]
  - Oedema peripheral [Unknown]
  - Skin discomfort [Unknown]
  - Pain of skin [Unknown]
  - Rhinorrhoea [Unknown]
  - Fluid retention [Unknown]
  - Feeling abnormal [Unknown]
  - Fall [Recovered/Resolved]
  - Product use in unapproved indication [Unknown]
  - Cough [Unknown]

NARRATIVE: CASE EVENT DATE: 201906
